FAERS Safety Report 16899404 (Version 1)
Quarter: 2019Q4

REPORT INFORMATION
  Report Type: Spontaneous
  Country: US (occurrence: US)
  Receive Date: 20191009
  Receipt Date: 20191009
  Transmission Date: 20200122
  Serious: No
  Sender: FDA-Public Use
  Company Number: US-KARYOPHARM-2019KPT000607

PATIENT
  Sex: Male

DRUGS (3)
  1. XPOVIO [Suspect]
     Active Substance: SELINEXOR
     Indication: PLASMA CELL MYELOMA
     Dosage: 100 MG AS DIRECTED
     Dates: start: 20190911
  2. VARUBI [Concomitant]
     Active Substance: ROLAPITANT
     Indication: PRODUCT USED FOR UNKNOWN INDICATION
     Dosage: 180 MG, ONCE EVERY 2 WEEKS
     Route: 048
     Dates: start: 20190911
  3. XPOVIO [Suspect]
     Active Substance: SELINEXOR
     Dosage: 180 EVERY 2 WEEKS
     Route: 048
     Dates: start: 20190911

REACTIONS (1)
  - Hospice care [Unknown]
